FAERS Safety Report 10677719 (Version 1)
Quarter: 2014Q4

REPORT INFORMATION
  Report Type: Spontaneous
  Country: JP (occurrence: JP)
  Receive Date: 20141229
  Receipt Date: 20141229
  Transmission Date: 20150529
  Serious: Yes (Other)
  Sender: FDA-Public Use
  Company Number: JP-CIPLA LTD.-2014JP02809

PATIENT
  Sex: Female

DRUGS (10)
  1. GRANISETRON [Suspect]
     Active Substance: GRANISETRON
     Indication: PROPHYLAXIS OF NAUSEA AND VOMITING
     Dosage: 75 MCG, DAILY FOR 10 DAYS
     Route: 058
  2. PACLITAXEL. [Suspect]
     Active Substance: PACLITAXEL
     Indication: ENDOMETRIAL CANCER
     Dosage: 160 MG/M2 (IN 500 ML SALINE, INFUSED OVER 3 H), ON DAY 2
  3. DEXAMETHASONE. [Concomitant]
     Active Substance: DEXAMETHASONE
     Indication: PROPHYLAXIS OF NAUSEA AND VOMITING
     Dosage: UNK
  4. PALONOSETRON [Concomitant]
     Active Substance: PALONOSETRON
     Indication: PROPHYLAXIS OF NAUSEA AND VOMITING
     Dosage: UNK
  5. APREPITANT. [Concomitant]
     Active Substance: APREPITANT
     Indication: PROPHYLAXIS OF NAUSEA AND VOMITING
     Dosage: UNK
  6. CISPLATIN. [Suspect]
     Active Substance: CISPLATIN
     Indication: ENDOMETRIAL CANCER
     Dosage: 50 MG/M2 (IN 500 ML SALINE, INFUSED OVER 2 H), ON DAY 1
  7. APREPITANT. [Concomitant]
     Active Substance: APREPITANT
     Indication: ANTIALLERGIC THERAPY
  8. DEXAMETHASONE. [Concomitant]
     Active Substance: DEXAMETHASONE
     Indication: ANTIALLERGIC THERAPY
  9. DOXORUBICIN [Suspect]
     Active Substance: DOXORUBICIN
     Indication: ENDOMETRIAL CANCER
     Dosage: 45 MG/M2 (IN 50 ML SALINE, INFUSED OVER 30 MIN)
  10. PALONOSETRON [Concomitant]
     Active Substance: PALONOSETRON
     Indication: ANTIALLERGIC THERAPY

REACTIONS (1)
  - Inappropriate antidiuretic hormone secretion [Unknown]
